FAERS Safety Report 4697999-5 (Version None)
Quarter: 2005Q2

REPORT INFORMATION
  Report Type: 
  Country: None (occurrence: None)
  Receive Date: 20050119
  Receipt Date: 20050119
  Transmission Date: 20051028
  Serious: Yes (Hospitalization)
  Sender: FDA-Public Use
  Company Number: None

PATIENT
  Age: 52 Year
  Sex: Male
  Weight: 99.7913 kg

DRUGS (4)
  1. FLUPHENAZINE [Suspect]
     Indication: SCHIZOPHRENIA, PARANOID TYPE
     Dosage: 25 MG IM Q WEEK
     Dates: start: 20030801, end: 20030901
  2. PROLIXIN DECANOATE [Suspect]
  3. DEPAKOTE [Concomitant]
  4. TRAZODONE [Concomitant]

REACTIONS (5)
  - DRUG EFFECT DECREASED [None]
  - IMPRISONMENT [None]
  - PSYCHOTIC DISORDER [None]
  - SEDATION [None]
  - THERAPEUTIC RESPONSE UNEXPECTED WITH DRUG SUBSTITUTION [None]
